FAERS Safety Report 16116988 (Version 2)
Quarter: 2019Q2

REPORT INFORMATION
  Report Type: Spontaneous
  Country: US (occurrence: US)
  Receive Date: 20190326
  Receipt Date: 20190402
  Transmission Date: 20190711
  Serious: No
  Sender: FDA-Public Use
  Company Number: US-PFIZER INC-2019122361

PATIENT
  Age: 49 Year
  Sex: Male
  Weight: 102.6 kg

DRUGS (1)
  1. ADVIL LIQUI-GELS [Suspect]
     Active Substance: IBUPROFEN
     Indication: MYALGIA
     Dosage: UNK
     Dates: start: 201903, end: 201903

REACTIONS (6)
  - Dysgeusia [Unknown]
  - Dizziness [Unknown]
  - Drug ineffective [Unknown]
  - Confusional state [Unknown]
  - Tooth injury [Recovering/Resolving]
  - Mouth haemorrhage [Recovering/Resolving]

NARRATIVE: CASE EVENT DATE: 2019
